FAERS Safety Report 13165654 (Version 1)
Quarter: 2017Q1

REPORT INFORMATION
  Report Type: Spontaneous
  Country: DE (occurrence: DE)
  Receive Date: 20170131
  Receipt Date: 20170131
  Transmission Date: 20170428
  Serious: Yes (Hospitalization)
  Sender: FDA-Public Use
  Company Number: DE-ACCORD-047784

PATIENT
  Age: 78 Year
  Sex: Male

DRUGS (8)
  1. LERCANIDIPINE [Concomitant]
     Active Substance: LERCANIDIPINE
     Dosage: DAILY DOSE: 10 MG MILLGRAM(S) EVERY DAYS
     Route: 048
  2. METFORMIN [Concomitant]
     Active Substance: METFORMIN HYDROCHLORIDE
     Dosage: DAILY DOSE: 850 MG MILLGRAM(S) EVERY DAYS
     Route: 048
  3. GLIMEPIRIDE. [Suspect]
     Active Substance: GLIMEPIRIDE
     Indication: PRODUCT USED FOR UNKNOWN INDICATION
     Route: 048
  4. LEVOPAR [Concomitant]
     Active Substance: BENSERAZIDE\LEVODOPA
     Dosage: DAILY DOSE: 3 DF DOSAGE FORM EVERY DAYS?STRENGTH:50/12.5MG
     Route: 048
  5. METOPROLOL. [Concomitant]
     Active Substance: METOPROLOL
     Dosage: DAILY DOSE: 95 MG MILLGRAM(S) EVERY DAYS
     Route: 048
  6. SIMVASTATIN. [Concomitant]
     Active Substance: SIMVASTATIN
     Dosage: DAILY DOSE: 20 MG MILLGRAM(S) EVERY DAYS
     Route: 048
  7. ENALAPRIL [Concomitant]
     Active Substance: ENALAPRIL
     Dosage: DAILY DOSE: 20 MG MILLGRAM(S) EVERY DAYS?REDUCTION OF ENALAPRIL TO 5 MG 1-0-1
     Route: 048
  8. ALLOPURINOL. [Concomitant]
     Active Substance: ALLOPURINOL
     Dosage: DAILY DOSE: 300 MG MILLGRAM(S) EVERY DAYS?DOSE REDUCED TO ALLOPURINOL 150 MG 0-0-1
     Route: 048

REACTIONS (3)
  - Hypoglycaemia [Recovered/Resolved]
  - Fall [Recovered/Resolved]
  - Syncope [Recovered/Resolved]

NARRATIVE: CASE EVENT DATE: 20161218
